FAERS Safety Report 21200538 (Version 1)
Quarter: 2022Q3

REPORT INFORMATION
  Report Type: Report from Study
  Country: CN (occurrence: CN)
  Receive Date: 20220811
  Receipt Date: 20220811
  Transmission Date: 20221027
  Serious: No
  Sender: FDA-Public Use
  Company Number: CN-BAXTER-2021BAX002815

PATIENT
  Age: 77 Year
  Sex: Female
  Weight: 52.5 kg

DRUGS (83)
  1. AMINO ACIDS\DEXTROSE\ELECTROLYTES NOS\SOYBEAN OIL [Suspect]
     Active Substance: AMINO ACIDS\DEXTROSE\ELECTROLYTES NOS\SOYBEAN OIL
     Indication: Product used for unknown indication
     Dosage: 1500ML, 4 ML/KG/H
     Route: 065
     Dates: start: 20201218, end: 20201218
  2. AMINO ACIDS\DEXTROSE\ELECTROLYTES NOS\SOYBEAN OIL [Suspect]
     Active Substance: AMINO ACIDS\DEXTROSE\ELECTROLYTES NOS\SOYBEAN OIL
     Dosage: 1500ML, 3 ML/KG/H
     Route: 065
     Dates: start: 20201219, end: 20201219
  3. AMINO ACIDS\DEXTROSE\ELECTROLYTES NOS\SOYBEAN OIL [Suspect]
     Active Substance: AMINO ACIDS\DEXTROSE\ELECTROLYTES NOS\SOYBEAN OIL
     Dosage: 1500ML, 3 ML/KG/H
     Route: 065
     Dates: start: 20201220, end: 20201220
  4. AMINO ACIDS\DEXTROSE\ELECTROLYTES NOS\SOYBEAN OIL [Suspect]
     Active Substance: AMINO ACIDS\DEXTROSE\ELECTROLYTES NOS\SOYBEAN OIL
     Dosage: 1500ML, 3 ML/KG/H
     Route: 065
     Dates: start: 20201221, end: 20201221
  5. AMINO ACIDS\DEXTROSE\ELECTROLYTES NOS\SOYBEAN OIL [Suspect]
     Active Substance: AMINO ACIDS\DEXTROSE\ELECTROLYTES NOS\SOYBEAN OIL
     Dosage: 1500ML, 3 ML/KG/H
     Route: 065
     Dates: start: 20201222, end: 20201222
  6. AMINO ACIDS\DEXTROSE\ELECTROLYTES NOS\SOYBEAN OIL [Suspect]
     Active Substance: AMINO ACIDS\DEXTROSE\ELECTROLYTES NOS\SOYBEAN OIL
     Dosage: 1500ML, 3 ML/KG/H
     Route: 065
     Dates: start: 20201223, end: 20201223
  7. AMINO ACIDS\DEXTROSE\ELECTROLYTES NOS\SOYBEAN OIL [Suspect]
     Active Substance: AMINO ACIDS\DEXTROSE\ELECTROLYTES NOS\SOYBEAN OIL
     Dosage: 1500ML, 3 ML/KG/H
     Route: 065
     Dates: start: 20201224, end: 20201224
  8. AMINO ACIDS\DEXTROSE\ELECTROLYTES NOS\SOYBEAN OIL [Suspect]
     Active Substance: AMINO ACIDS\DEXTROSE\ELECTROLYTES NOS\SOYBEAN OIL
     Dosage: 1500ML, 3 ML/KG/H
     Route: 065
     Dates: start: 20201225, end: 20201225
  9. AMINO ACIDS\DEXTROSE\ELECTROLYTES NOS\SOYBEAN OIL [Suspect]
     Active Substance: AMINO ACIDS\DEXTROSE\ELECTROLYTES NOS\SOYBEAN OIL
     Dosage: 1500ML, 3 ML/KG/H
     Route: 065
     Dates: start: 20201226, end: 20201226
  10. AMINO ACIDS\DEXTROSE\ELECTROLYTES NOS\SOYBEAN OIL [Suspect]
     Active Substance: AMINO ACIDS\DEXTROSE\ELECTROLYTES NOS\SOYBEAN OIL
     Dosage: 1500ML, 3 ML/KG/H
     Route: 065
     Dates: start: 20201227, end: 20201227
  11. AMINO ACIDS\DEXTROSE\ELECTROLYTES NOS\SOYBEAN OIL [Suspect]
     Active Substance: AMINO ACIDS\DEXTROSE\ELECTROLYTES NOS\SOYBEAN OIL
     Dosage: 1500ML, 3 ML/KG/H
     Route: 065
     Dates: start: 20201228, end: 20201228
  12. AMINO ACIDS\DEXTROSE\ELECTROLYTES NOS\SOYBEAN OIL [Suspect]
     Active Substance: AMINO ACIDS\DEXTROSE\ELECTROLYTES NOS\SOYBEAN OIL
     Dosage: 1500ML, 3 ML/KG/H, END OF TREATMENT
     Route: 065
     Dates: start: 20201229, end: 20201229
  13. CLINOMEL [Suspect]
     Active Substance: AMINO ACIDS\DEXTROSE\ELECTROLYTES NOS\SOYBEAN OIL
     Indication: Nutritional supplementation
     Dosage: 1000 ML,QD, INTRAVENOUS(PERIPHERAL VEIN/CENTRAL VEIN)
     Route: 042
     Dates: start: 20201214, end: 20201216
  14. CEFOPERAZONE SODIUM [Concomitant]
     Active Substance: CEFOPERAZONE SODIUM
     Indication: Antiinflammatory therapy
     Dosage: 2 G, 3X A DAY, INTRAVENOUS (PERIPHERAL VEIN/CENTRA L VEIN)
     Route: 042
     Dates: start: 20201217, end: 20201224
  15. CEFOPERAZONE SODIUM [Concomitant]
     Active Substance: CEFOPERAZONE SODIUM
     Indication: Post procedural complication
  16. PHLOROGLUCINOL [Concomitant]
     Active Substance: PHLOROGLUCINOL
     Indication: Postoperative analgesia
     Dosage: 120 MG, QD, INTRAVENOUS (PERIPHERAL VEIN/CENTRA L VEIN)
     Route: 042
     Dates: start: 20201217, end: 20201226
  17. PHLOROGLUCINOL [Concomitant]
     Active Substance: PHLOROGLUCINOL
     Indication: Analgesic therapy
  18. NADROPARIN CALCIUM [Concomitant]
     Active Substance: NADROPARIN CALCIUM
     Indication: Anticoagulant therapy
     Dosage: 4100 IU (INTERNATIONAL UNIT),QD
     Route: 058
     Dates: start: 20201217, end: 20201229
  19. NADROPARIN CALCIUM [Concomitant]
     Active Substance: NADROPARIN CALCIUM
     Indication: Post procedural complication
  20. PANTOPRAZOLE SODIUM [Concomitant]
     Active Substance: PANTOPRAZOLE SODIUM
     Indication: Post procedural complication
     Dosage: 40 MG QD, INTRAVENOUS (PERIPHERAL VEIN/CENTRAL VEIN)
     Route: 042
     Dates: start: 20201214, end: 20201216
  21. PANTOPRAZOLE SODIUM [Concomitant]
     Active Substance: PANTOPRAZOLE SODIUM
     Indication: Gastric pH decreased
  22. VITAMINS [Concomitant]
     Active Substance: VITAMINS
     Indication: Drug therapy
     Dosage: 5 ML
     Route: 065
     Dates: start: 20201218, end: 20201218
  23. VITAMINS [Concomitant]
     Active Substance: VITAMINS
     Dosage: 5 ML
     Route: 065
     Dates: start: 20201219, end: 20201219
  24. VITAMINS [Concomitant]
     Active Substance: VITAMINS
     Dosage: 5 ML
     Route: 065
     Dates: start: 20201220, end: 20201220
  25. VITAMINS [Concomitant]
     Active Substance: VITAMINS
     Dosage: 5 ML
     Route: 065
     Dates: start: 20201221, end: 20201221
  26. VITAMINS [Concomitant]
     Active Substance: VITAMINS
     Dosage: 5 ML
     Route: 065
     Dates: start: 20201222, end: 20201222
  27. VITAMINS [Concomitant]
     Active Substance: VITAMINS
     Dosage: 5 ML
     Route: 065
     Dates: start: 20201223, end: 20201223
  28. VITAMINS [Concomitant]
     Active Substance: VITAMINS
     Dosage: 5 ML
     Route: 065
     Dates: start: 20201224, end: 20201224
  29. VITAMINS [Concomitant]
     Active Substance: VITAMINS
     Dosage: 5 ML
     Route: 065
     Dates: start: 20201225, end: 20201225
  30. VITAMINS [Concomitant]
     Active Substance: VITAMINS
     Dosage: 5 ML
     Route: 065
     Dates: start: 20201226, end: 20201226
  31. VITAMINS [Concomitant]
     Active Substance: VITAMINS
     Dosage: 5 ML
     Route: 065
     Dates: start: 20201227, end: 20201227
  32. VITAMINS [Concomitant]
     Active Substance: VITAMINS
     Dosage: 5 ML
     Route: 065
     Dates: start: 20201228, end: 20201228
  33. VITAMINS [Concomitant]
     Active Substance: VITAMINS
     Dosage: 5 ML
     Route: 065
     Dates: start: 20201229, end: 20201229
  34. UNSPECIFIED INGREDIENT [Concomitant]
     Active Substance: UNSPECIFIED INGREDIENT
     Indication: Drug therapy
     Dosage: 60 ML
     Route: 065
     Dates: start: 20201218, end: 20201218
  35. UNSPECIFIED INGREDIENT [Concomitant]
     Active Substance: UNSPECIFIED INGREDIENT
     Dosage: 60 ML
     Route: 065
     Dates: start: 20201219, end: 20201219
  36. UNSPECIFIED INGREDIENT [Concomitant]
     Active Substance: UNSPECIFIED INGREDIENT
     Dosage: 60 ML
     Route: 065
     Dates: start: 20201220, end: 20201220
  37. UNSPECIFIED INGREDIENT [Concomitant]
     Active Substance: UNSPECIFIED INGREDIENT
     Dosage: 60 ML
     Route: 065
     Dates: start: 20201221, end: 20201221
  38. UNSPECIFIED INGREDIENT [Concomitant]
     Active Substance: UNSPECIFIED INGREDIENT
     Dosage: 60 ML
     Route: 065
     Dates: start: 20201222, end: 20201222
  39. UNSPECIFIED INGREDIENT [Concomitant]
     Active Substance: UNSPECIFIED INGREDIENT
     Dosage: 60 ML
     Route: 065
     Dates: start: 20201223, end: 20201223
  40. UNSPECIFIED INGREDIENT [Concomitant]
     Active Substance: UNSPECIFIED INGREDIENT
     Dosage: 60 ML
     Route: 065
     Dates: start: 20201224, end: 20201224
  41. UNSPECIFIED INGREDIENT [Concomitant]
     Active Substance: UNSPECIFIED INGREDIENT
     Dosage: 60 ML
     Route: 065
     Dates: start: 20201225, end: 20201225
  42. UNSPECIFIED INGREDIENT [Concomitant]
     Active Substance: UNSPECIFIED INGREDIENT
     Dosage: 60 ML
     Route: 065
     Dates: start: 20201226, end: 20201226
  43. UNSPECIFIED INGREDIENT [Concomitant]
     Active Substance: UNSPECIFIED INGREDIENT
     Dosage: 60 ML
     Route: 065
     Dates: start: 20201227, end: 20201227
  44. UNSPECIFIED INGREDIENT [Concomitant]
     Active Substance: UNSPECIFIED INGREDIENT
     Dosage: 60 ML
     Route: 065
     Dates: start: 20201228, end: 20201228
  45. UNSPECIFIED INGREDIENT [Concomitant]
     Active Substance: UNSPECIFIED INGREDIENT
     Dosage: 60 ML
     Route: 065
     Dates: start: 20201229, end: 20201229
  46. DEXTROSE [Concomitant]
     Active Substance: DEXTROSE
     Indication: Drug therapy
     Dosage: 100 ML
     Route: 065
     Dates: start: 20201218, end: 20201218
  47. DEXTROSE [Concomitant]
     Active Substance: DEXTROSE
     Dosage: 100 ML
     Route: 065
     Dates: start: 20201219, end: 20201219
  48. DEXTROSE [Concomitant]
     Active Substance: DEXTROSE
     Dosage: 100 ML
     Route: 065
     Dates: start: 20201220, end: 20201220
  49. DEXTROSE [Concomitant]
     Active Substance: DEXTROSE
     Dosage: 100 ML
     Route: 065
     Dates: start: 20201221, end: 20201221
  50. DEXTROSE [Concomitant]
     Active Substance: DEXTROSE
     Dosage: 100 ML
     Route: 065
     Dates: start: 20201222, end: 20201222
  51. DEXTROSE [Concomitant]
     Active Substance: DEXTROSE
     Dosage: 100 ML
     Route: 065
     Dates: start: 20201223, end: 20201223
  52. DEXTROSE [Concomitant]
     Active Substance: DEXTROSE
     Dosage: 100 ML
     Route: 065
     Dates: start: 20201224, end: 20201224
  53. DEXTROSE [Concomitant]
     Active Substance: DEXTROSE
     Dosage: 100 ML
     Route: 065
     Dates: start: 20201225, end: 20201225
  54. DEXTROSE [Concomitant]
     Active Substance: DEXTROSE
     Dosage: 100 ML
     Route: 065
     Dates: start: 20201226, end: 20201226
  55. DEXTROSE [Concomitant]
     Active Substance: DEXTROSE
     Dosage: 100 ML
     Route: 065
     Dates: start: 20201227, end: 20201227
  56. DEXTROSE [Concomitant]
     Active Substance: DEXTROSE
     Dosage: 100 ML
     Route: 065
     Dates: start: 20201228, end: 20201228
  57. DEXTROSE [Concomitant]
     Active Substance: DEXTROSE
     Dosage: 100 ML
     Route: 065
     Dates: start: 20201229, end: 20201229
  58. STERILE WATER [Concomitant]
     Active Substance: WATER
     Indication: Drug therapy
     Dosage: 5 ML
     Route: 065
     Dates: start: 20201218, end: 20201218
  59. STERILE WATER [Concomitant]
     Active Substance: WATER
     Dosage: 5 ML
     Route: 065
     Dates: start: 20201219, end: 20201219
  60. STERILE WATER [Concomitant]
     Active Substance: WATER
     Dosage: 5 ML
     Route: 065
     Dates: start: 20201220, end: 20201220
  61. STERILE WATER [Concomitant]
     Active Substance: WATER
     Dosage: 5 ML
     Route: 065
     Dates: start: 20201221, end: 20201221
  62. STERILE WATER [Concomitant]
     Active Substance: WATER
     Dosage: 5 ML
     Route: 065
     Dates: start: 20201222, end: 20201222
  63. STERILE WATER [Concomitant]
     Active Substance: WATER
     Dosage: 5 ML
     Route: 065
     Dates: start: 20201223, end: 20201223
  64. STERILE WATER [Concomitant]
     Active Substance: WATER
     Dosage: 5 ML
     Route: 065
     Dates: start: 20201224, end: 20201224
  65. STERILE WATER [Concomitant]
     Active Substance: WATER
     Dosage: 5 ML
     Route: 065
     Dates: start: 20201225, end: 20201225
  66. STERILE WATER [Concomitant]
     Active Substance: WATER
     Dosage: 5 ML
     Route: 065
     Dates: start: 20201226, end: 20201226
  67. STERILE WATER [Concomitant]
     Active Substance: WATER
     Dosage: 5 ML
     Route: 065
     Dates: start: 20201227, end: 20201227
  68. STERILE WATER [Concomitant]
     Active Substance: WATER
     Dosage: 5 ML
     Route: 065
     Dates: start: 20201228, end: 20201228
  69. STERILE WATER [Concomitant]
     Active Substance: WATER
     Dosage: 5 ML
     Route: 065
     Dates: start: 20201229, end: 20201229
  70. INSULIN NOS [Concomitant]
     Active Substance: INSULIN NOS
     Indication: Drug therapy
     Dosage: 26 IU
     Route: 065
     Dates: start: 20201218, end: 20201218
  71. INSULIN NOS [Concomitant]
     Active Substance: INSULIN NOS
     Dosage: 26 IU
     Route: 065
     Dates: start: 20201219, end: 20201219
  72. INSULIN NOS [Concomitant]
     Active Substance: INSULIN NOS
     Dosage: 26 IU
     Route: 065
     Dates: start: 20201220, end: 20201220
  73. INSULIN NOS [Concomitant]
     Active Substance: INSULIN NOS
     Dosage: 26 IU
     Route: 065
     Dates: start: 20201221, end: 20201221
  74. INSULIN NOS [Concomitant]
     Active Substance: INSULIN NOS
     Dosage: 26 IU
     Route: 065
     Dates: start: 20201222, end: 20201222
  75. INSULIN NOS [Concomitant]
     Active Substance: INSULIN NOS
     Dosage: 26 IU
     Route: 065
     Dates: start: 20201223, end: 20201223
  76. INSULIN NOS [Concomitant]
     Active Substance: INSULIN NOS
     Dosage: 26 IU
     Route: 065
     Dates: start: 20201224, end: 20201224
  77. INSULIN NOS [Concomitant]
     Active Substance: INSULIN NOS
     Dosage: 26 IU
     Route: 065
     Dates: start: 20201225, end: 20201225
  78. INSULIN NOS [Concomitant]
     Active Substance: INSULIN NOS
     Dosage: 26 IU
     Route: 065
     Dates: start: 20201226, end: 20201226
  79. INSULIN NOS [Concomitant]
     Active Substance: INSULIN NOS
     Dosage: 26 IU
     Route: 065
     Dates: start: 20201227, end: 20201227
  80. INSULIN NOS [Concomitant]
     Active Substance: INSULIN NOS
     Dosage: 26 IU
     Route: 065
     Dates: start: 20201228, end: 20201228
  81. INSULIN NOS [Concomitant]
     Active Substance: INSULIN NOS
     Dosage: 26 IU
     Route: 065
     Dates: start: 20201229, end: 20201229
  82. ILAPRAZOLE [Concomitant]
     Active Substance: ILAPRAZOLE
     Indication: Gastric pH decreased
     Dosage: 10 MG ONCE DAILY, INTRAVENOUS(PERIPHERAL VEIN/CENTRAL VEIN)
     Route: 042
     Dates: start: 20201217, end: 20201224
  83. ILAPRAZOLE [Concomitant]
     Active Substance: ILAPRAZOLE
     Indication: Post procedural complication

REACTIONS (1)
  - Liver function test abnormal [Recovered/Resolved]

NARRATIVE: CASE EVENT DATE: 20201223
